FAERS Safety Report 7812970-X (Version None)
Quarter: 2011Q4

REPORT INFORMATION
  Report Type: 
  Country: None (occurrence: None)
  Receive Date: 20111013
  Receipt Date: 20111007
  Transmission Date: 20120403
  Serious: Yes (Hospitalization, Other)
  Sender: FDA-Public Use
  Company Number: US-ABBOTT-11P-163-0862087-00

PATIENT
  Sex: Female
  Weight: 86.26 kg

DRUGS (10)
  1. LACTAID [Concomitant]
     Indication: LACTOSE INTOLERANCE
  2. ENTOCORT EC [Concomitant]
     Indication: GASTROINTESTINAL DISORDER
  3. PREVACID [Concomitant]
     Indication: ABDOMINAL DISCOMFORT
  4. VITAMIN D [Concomitant]
     Indication: VITAMIN SUPPLEMENTATION
  5. PREVACID [Concomitant]
     Indication: PROPHYLAXIS
  6. ASPIRIN [Concomitant]
     Indication: THROMBOSIS PROPHYLAXIS
  7. HUMIRA [Suspect]
     Indication: RHEUMATOID ARTHRITIS
     Dates: start: 20080101, end: 20110601
  8. PLAQUENIL [Concomitant]
     Indication: RHEUMATOID ARTHRITIS
  9. TOPAMAX [Concomitant]
     Indication: HEADACHE
  10. EFFEXOR [Concomitant]
     Indication: MIGRAINE

REACTIONS (6)
  - ARTHRALGIA [None]
  - HEPATIC CIRRHOSIS [None]
  - CHOLELITHIASIS [None]
  - PAIN [None]
  - NEPHROLITHIASIS [None]
  - FIBROMYALGIA [None]
